FAERS Safety Report 17798733 (Version 1)
Quarter: 2020Q2

REPORT INFORMATION
  Report Type: Spontaneous
  Country: AR (occurrence: AR)
  Receive Date: 20200515
  Receipt Date: 20200515
  Transmission Date: 20200714
  Serious: Yes (Other)
  Sender: FDA-Public Use
  Company Number: None

PATIENT
  Age: 72 Year
  Sex: Male
  Weight: 86 kg

DRUGS (10)
  1. PEMBROLIZUMAB. [Suspect]
     Active Substance: PEMBROLIZUMAB
     Indication: MALIGNANT MELANOMA
     Dates: start: 20180801, end: 20200318
  2. LOSARTAN POTASSIUM. [Concomitant]
     Active Substance: LOSARTAN POTASSIUM
  3. COLLAGEN II [Concomitant]
  4. PEMBROLIZUMAB. [Suspect]
     Active Substance: PEMBROLIZUMAB
     Indication: METASTATIC MALIGNANT MELANOMA
     Dates: start: 20180801, end: 20200318
  5. AMLODIPINE [Concomitant]
     Active Substance: AMLODIPINE BESYLATE
  6. APITOXIN [Concomitant]
  7. PARACETAMOL [Concomitant]
     Active Substance: ACETAMINOPHEN
  8. PANTOPRAZOLE [Concomitant]
     Active Substance: PANTOPRAZOLE
  9. MELOXICAM. [Concomitant]
     Active Substance: MELOXICAM
  10. CYPROVIT CALCIUM [Concomitant]

REACTIONS (11)
  - Red blood cell count decreased [None]
  - Cartilage atrophy [None]
  - Dyspnoea [None]
  - Tremor [None]
  - Fatigue [None]
  - Joint swelling [None]
  - Platelet count increased [None]
  - Muscle atrophy [None]
  - Toxicity to various agents [None]
  - Loss of consciousness [None]
  - Night sweats [None]

NARRATIVE: CASE EVENT DATE: 20200318
